FAERS Safety Report 20131670 (Version 2)
Quarter: 2022Q1

REPORT INFORMATION
  Report Type: Report from Study
  Country: PE (occurrence: PE)
  Receive Date: 20211130
  Receipt Date: 20220329
  Transmission Date: 20220424
  Serious: Yes (Hospitalization, Other)
  Sender: FDA-Public Use
  Company Number: PE-BAYER-2021A240391

PATIENT
  Age: 61 Year
  Sex: Male

DRUGS (4)
  1. NEXAVAR [Suspect]
     Active Substance: SORAFENIB
     Indication: Hepatocellular carcinoma
     Dosage: DAILY DOSE 800 MG
     Dates: start: 20210731, end: 20211011
  2. NEXAVAR [Suspect]
     Active Substance: SORAFENIB
     Indication: Hepatocellular carcinoma
     Dosage: DAILY DOSE 600 MG (200 MG 1 TABLET EVERY 8 HOURS)
     Route: 048
     Dates: end: 20211113
  3. NEXAVAR [Suspect]
     Active Substance: SORAFENIB
     Indication: Hepatocellular carcinoma
     Dosage: DAILY DOSE 800 MG
     Route: 048
     Dates: end: 202112
  4. TENOFOVIR [Concomitant]
     Active Substance: TENOFOVIR
     Indication: Hepatitis B
     Dosage: UNK

REACTIONS (8)
  - Hepatitis [None]
  - Platelet count decreased [Not Recovered/Not Resolved]
  - Platelet count decreased [None]
  - Rectal haemorrhage [None]
  - Gastritis [None]
  - Flatulence [None]
  - Scar [None]
  - Off label use [None]

NARRATIVE: CASE EVENT DATE: 20211001
